FAERS Safety Report 5598871-9 (Version None)
Quarter: 2008Q1

REPORT INFORMATION
  Report Type: 
  Country: None (occurrence: None)
  Receive Date: 20080122
  Receipt Date: 20080110
  Transmission Date: 20080703
  Serious: Yes (Death, Hospitalization)
  Sender: FDA-Public Use
  Company Number: FR-WYE-H02215208

PATIENT
  Sex: Male

DRUGS (7)
  1. CORDARONE [Suspect]
     Indication: ATRIAL FIBRILLATION
     Route: 048
     Dates: start: 20071110, end: 20071210
  2. BISOPROLOL/HYDROCHLOROTHIAZIDE [Concomitant]
     Dosage: UNSPECIFIED
     Route: 048
  3. RISPERDAL [Concomitant]
  4. ZANIDIP [Concomitant]
     Dosage: UNSPECIFIED
     Route: 048
  5. MOPRAL [Concomitant]
  6. PREVISCAN [Suspect]
     Indication: THROMBOSIS PROPHYLAXIS
     Route: 048
     Dates: start: 20071110, end: 20071210
  7. MICARDIS [Concomitant]
     Dosage: UNSPECIFIED
     Route: 048

REACTIONS (2)
  - CEREBRAL HAEMATOMA [None]
  - HAEMORRHAGIC STROKE [None]
